FAERS Safety Report 19202512 (Version 3)
Quarter: 2021Q2

REPORT INFORMATION
  Report Type: Spontaneous
  Country: CN (occurrence: CN)
  Receive Date: 20210430
  Receipt Date: 20210525
  Transmission Date: 20210717
  Serious: Yes (Hospitalization)
  Sender: FDA-Public Use
  Company Number: CN-GLAXOSMITHKLINE-CN2021APC089086

PATIENT
  Age: 3 Year
  Sex: Male
  Weight: 17 kg

DRUGS (2)
  1. FLIXOTIDE [Suspect]
     Active Substance: FLUTICASONE PROPIONATE
     Indication: ASTHMA
     Dosage: 2 PUFF(S), BID,50UG/120 PUFFS
     Route: 055
     Dates: start: 20210314
  2. FLIXOTIDE [Suspect]
     Active Substance: FLUTICASONE PROPIONATE
     Indication: ASTHMA
     Dosage: 2D/ BID
     Route: 055

REACTIONS (6)
  - Asthma [Recovering/Resolving]
  - Nasopharyngitis [Unknown]
  - Product complaint [Unknown]
  - Cough [Unknown]
  - Dyspnoea [Unknown]
  - Underdose [Recovered/Resolved]

NARRATIVE: CASE EVENT DATE: 20210411
